FAERS Safety Report 9045503 (Version 1)
Quarter: 2013Q1

REPORT INFORMATION
  Report Type: Spontaneous
  Country: US (occurrence: US)
  Receive Date: 20130131
  Receipt Date: 20130131
  Transmission Date: 20140127
  Serious: No
  Sender: FDA-Public Use
  Company Number: US-ABBOTT-12P-163-0929869-00

PATIENT
  Sex: 0

DRUGS (4)
  1. HUMIRA 40 MG/ 0.8 ML PRE-FILLED SYRINGE [Suspect]
     Indication: PRODUCT USED FOR UNKNOWN INDICATION
  2. PREDNISALONE [Concomitant]
     Indication: PRODUCT USED FOR UNKNOWN INDICATION
  3. ANTIFUNGALS FOR DERMATOLOGICAL USE [Concomitant]
     Indication: PRODUCT USED FOR UNKNOWN INDICATION
  4. NEUPOGEN [Concomitant]
     Indication: PRODUCT USED FOR UNKNOWN INDICATION

REACTIONS (16)
  - Mucous stools [Unknown]
  - Alopecia [Unknown]
  - Unevaluable event [Unknown]
  - Muscle spasms [Unknown]
  - Mouth ulceration [Unknown]
  - Candida infection [Unknown]
  - Nasopharyngitis [Unknown]
  - White blood cell count decreased [Unknown]
  - Hypersomnia [Unknown]
  - Unevaluable event [Unknown]
  - Nasopharyngitis [Unknown]
  - Fatigue [Unknown]
  - Nephrolithiasis [Unknown]
  - Pain [Unknown]
  - Fatigue [Unknown]
  - Bone pain [Unknown]
